FAERS Safety Report 6556528-1 (Version None)
Quarter: 2010Q1

REPORT INFORMATION
  Report Type: 
  Country: None (occurrence: None)
  Receive Date: 20100128
  Receipt Date: 20100121
  Transmission Date: 20100710
  Serious: Yes (Other)
  Sender: FDA-Public Use
  Company Number: US-PFIZER INC-2009271884

PATIENT
  Sex: Female
  Weight: 65 kg

DRUGS (3)
  1. CHANTIX [Suspect]
     Indication: SMOKING CESSATION THERAPY
     Dosage: UNK
     Route: 048
     Dates: start: 20090301, end: 20090301
  2. CHANTIX [Suspect]
     Dates: start: 20090301
  3. ORAL CONTRACEPTIVE NOS [Concomitant]

REACTIONS (6)
  - AGGRESSION [None]
  - ANGER [None]
  - DEPRESSED MOOD [None]
  - IMPULSIVE BEHAVIOUR [None]
  - PHYSICAL ASSAULT [None]
  - SUICIDAL IDEATION [None]
